FAERS Safety Report 6158945-0 (Version None)
Quarter: 2009Q2

REPORT INFORMATION
  Report Type: 
  Country: None (occurrence: None)
  Receive Date: 20090417
  Receipt Date: 20090410
  Transmission Date: 20091009
  Serious: Yes (Death)
  Sender: FDA-Public Use
  Company Number: US-CVT-090190

PATIENT

DRUGS (2)
  1. RANEXA [Suspect]
     Indication: ANGINA PECTORIS
     Route: 048
     Dates: start: 20090401, end: 20090401
  2. BETA BLOCKING AGENTS [Suspect]
     Dates: end: 20090401

REACTIONS (1)
  - DEATH [None]
